FAERS Safety Report 5662209-9 (Version None)
Quarter: 2008Q1

REPORT INFORMATION
  Report Type: 
  Country: None (occurrence: None)
  Receive Date: 20080312
  Receipt Date: 20080304
  Transmission Date: 20080703
  Serious: Yes (Other)
  Sender: FDA-Public Use
  Company Number: US-GILEAD-2008-0015550

PATIENT
  Sex: Male
  Weight: 96.248 kg

DRUGS (8)
  1. LETAIRIS [Suspect]
     Indication: PULMONARY HYPERTENSION
     Route: 048
     Dates: start: 20071005
  2. REVATIO [Concomitant]
     Indication: PULMONARY HYPERTENSION
     Route: 048
  3. COUMADIN [Concomitant]
     Indication: ANTICOAGULANT THERAPY
     Route: 048
  4. COUMADIN [Concomitant]
     Route: 048
  5. PROTONIX [Concomitant]
     Indication: GASTROOESOPHAGEAL REFLUX DISEASE
     Route: 048
  6. IRON [Concomitant]
     Indication: ANAEMIA
     Route: 048
  7. SPIRONOLACTONE [Concomitant]
     Indication: PULMONARY HYPERTENSION
     Route: 048
  8. SPIRIVA [Concomitant]
     Route: 055

REACTIONS (2)
  - PYREXIA [None]
  - RASH [None]
